FAERS Safety Report 7709931-8 (Version None)
Quarter: 2011Q3

REPORT INFORMATION
  Report Type: 
  Country: None (occurrence: None)
  Receive Date: 20110825
  Receipt Date: 20110816
  Transmission Date: 20111222
  Serious: Yes (Other)
  Sender: FDA-Public Use
  Company Number: FR-VERTEX PHARMACEUTICALS INC.-AE-2011-000095

PATIENT
  Sex: Female
  Weight: 51 kg

DRUGS (5)
  1. VX-950 [Suspect]
     Indication: HEPATITIS C
     Route: 048
     Dates: start: 20110224, end: 20110518
  2. PEGINTERFERON ALFA-2A [Concomitant]
     Indication: HEPATITIS C
     Route: 058
     Dates: start: 20110224
  3. PROMACTA [Concomitant]
     Indication: THROMBOCYTOPENIA
     Route: 048
     Dates: start: 20110224
  4. PEGINTERFERON ALFA-2A [Concomitant]
     Route: 058
     Dates: end: 20110524
  5. RIBAVIRIN [Concomitant]
     Indication: HEPATITIS C
     Route: 048
     Dates: start: 20110224

REACTIONS (4)
  - ANAEMIA [None]
  - NEUTROPHIL COUNT DECREASED [None]
  - THROMBOCYTOPENIA [None]
  - LEUKOPENIA [None]
